FAERS Safety Report 6182790-3 (Version None)
Quarter: 2009Q2

REPORT INFORMATION
  Report Type: 
  Country: None (occurrence: None)
  Receive Date: 20090507
  Receipt Date: 20090428
  Transmission Date: 20091009
  Serious: Yes (Hospitalization)
  Sender: FDA-Public Use
  Company Number: FR-B.I. PHARMACEUTICALS,INC./RIDGEFIELD-2000-FF-S0418

PATIENT
  Age: 81 Year
  Sex: Female
  Weight: 49 kg

DRUGS (2)
  1. MOBIC [Suspect]
     Indication: SPONDYLITIS
     Route: 048
  2. TILCOTIL [Concomitant]
     Dosage: 120MG
     Route: 030
     Dates: start: 20000220

REACTIONS (2)
  - RENAL FAILURE ACUTE [None]
  - RENAL FAILURE CHRONIC [None]
